FAERS Safety Report 19392191 (Version 1)
Quarter: 2021Q2

REPORT INFORMATION
  Report Type: Spontaneous
  Country: EG (occurrence: EG)
  Receive Date: 20210608
  Receipt Date: 20210608
  Transmission Date: 20210717
  Serious: Yes (Death)
  Sender: FDA-Public Use
  Company Number: EG-PFIZER INC-2021640422

PATIENT
  Age: 35 Year
  Sex: Male

DRUGS (5)
  1. NEUROBION [Concomitant]
     Active Substance: CYANOCOBALAMIN\PYRIDOXINE\THIAMINE
     Dosage: VIAL  EVERY 3 DAYS
     Route: 030
  2. QUIBRON [Concomitant]
     Dosage: 30 MG
  3. XALKORI [Suspect]
     Active Substance: CRIZOTINIB
     Dosage: 250 MG, 2X/DAY
     Route: 048
  4. METHABIOGEN [Concomitant]
     Dosage: 8 MG, 1X/DAY
  5. SELGON [Concomitant]

REACTIONS (1)
  - Death [Fatal]
